FAERS Safety Report 4936394-8 (Version None)
Quarter: 2006Q1

REPORT INFORMATION
  Report Type: 
  Country: None (occurrence: None)
  Receive Date: 20060307
  Receipt Date: 20060227
  Transmission Date: 20060701
  Serious: Yes (Hospitalization)
  Sender: FDA-Public Use
  Company Number: JP-BRACCO-BRO-009861

PATIENT
  Age: 36 Year
  Sex: Male

DRUGS (1)
  1. IOPAMIRON [Suspect]
     Route: 042
     Dates: start: 20060223, end: 20060223

REACTIONS (1)
  - CARDIAC ARREST [None]
